FAERS Safety Report 6560645-X (Version None)
Quarter: 2010Q1

REPORT INFORMATION
  Report Type: 
  Country: None (occurrence: None)
  Receive Date: 20100129
  Receipt Date: 20050113
  Transmission Date: 20100710
  Serious: No
  Sender: FDA-Public Use
  Company Number: US-ALLERGAN-200502340

PATIENT
  Age: 55 Year
  Sex: Male

DRUGS (1)
  1. BOTOX [Suspect]
     Indication: ANAL FISSURE
     Dosage: 1UNITS, SINGLE
     Route: 030

REACTIONS (2)
  - INJECTION SITE PAIN [None]
  - WRONG TECHNIQUE IN DRUG USAGE PROCESS [None]
